FAERS Safety Report 8959732 (Version 2)
Quarter: 2013Q1

REPORT INFORMATION
  Report Type: Spontaneous
  Country: DK (occurrence: DK)
  Receive Date: 20121211
  Receipt Date: 20130327
  Transmission Date: 20140127
  Serious: Yes (Hospitalization)
  Sender: FDA-Public Use
  Company Number: DK-JNJFOC-20121203073

PATIENT
  Age: 90 Year
  Sex: Female

DRUGS (1)
  1. PALEXIA [Suspect]
     Indication: PAIN
     Route: 048
     Dates: start: 20121113, end: 20121127

REACTIONS (4)
  - Fall [Not Recovered/Not Resolved]
  - Confusional state [Not Recovered/Not Resolved]
  - Dizziness [Not Recovered/Not Resolved]
  - General physical health deterioration [Not Recovered/Not Resolved]
